FAERS Safety Report 18436174 (Version 1)
Quarter: 2020Q4

REPORT INFORMATION
  Report Type: Spontaneous
  Country: US (occurrence: US)
  Receive Date: 20201028
  Receipt Date: 20201028
  Transmission Date: 20210114
  Serious: Yes (Other)
  Sender: FDA-Public Use
  Company Number: None

PATIENT
  Age: 42 Year
  Sex: Female
  Weight: 108 kg

DRUGS (3)
  1. BUPROPION XL 300MG [Concomitant]
     Active Substance: BUPROPION
  2. SUBOXONE [Suspect]
     Active Substance: BUPRENORPHINE HYDROCHLORIDE\NALOXONE HYDROCHLORIDE
     Indication: DRUG DEPENDENCE
     Dosage: ?          QUANTITY:1 FILM;?
     Route: 060
  3. VITAMIN D 50000 IU [Concomitant]
     Active Substance: ERGOCALCIFEROL

REACTIONS (3)
  - Product measured potency issue [None]
  - Restless legs syndrome [None]
  - Drug withdrawal syndrome [None]

NARRATIVE: CASE EVENT DATE: 20201027
